FAERS Safety Report 4804100-3 (Version None)
Quarter: 2005Q4

REPORT INFORMATION
  Report Type: 
  Country: None (occurrence: None)
  Receive Date: 20051014
  Receipt Date: 20051005
  Transmission Date: 20060501
  Serious: Yes (Other)
  Sender: FDA-Public Use
  Company Number: HQWYE928907OCT05

PATIENT
  Age: 17 Year
  Sex: Male

DRUGS (4)
  1. RAPAMUNE [Suspect]
     Dosage: ORAL
     Route: 048
  2. CAMPATH (ALEMTUZUMAB) [Concomitant]
  3. PROGRAF [Concomitant]
  4. CELLCEPT [Concomitant]

REACTIONS (1)
  - NEPHRITIS INTERSTITIAL [None]
